FAERS Safety Report 7155733-3 (Version None)
Quarter: 2010Q4

REPORT INFORMATION
  Report Type: 
  Country: None (occurrence: None)
  Receive Date: 20101214
  Receipt Date: 20100817
  Transmission Date: 20110411
  Serious: Yes (Other)
  Sender: FDA-Public Use
  Company Number: US-BAYER-201018202NA

PATIENT
  Sex: Female
  Weight: 78.182 kg

DRUGS (9)
  1. YAZ [Suspect]
     Indication: ORAL CONTRACEPTION
     Route: 048
     Dates: start: 20050101, end: 20080301
  2. YASMIN [Suspect]
     Route: 048
     Dates: start: 20050101, end: 20080301
  3. SYNTHROID [Concomitant]
     Indication: THYROID DISORDER
     Dates: start: 20050101
  4. FLONASE [Concomitant]
     Indication: MULTIPLE ALLERGIES
     Dates: start: 20050101
  5. ZYRTEC [Concomitant]
     Indication: MULTIPLE ALLERGIES
     Dates: start: 20050101
  6. LIPITOR [Concomitant]
     Dates: start: 20060101
  7. PRILOSEC [Concomitant]
     Dates: start: 20060101
  8. FISH OIL [Concomitant]
     Dates: start: 20080101
  9. ADVIL [Concomitant]

REACTIONS (4)
  - CHEST PAIN [None]
  - CHOLECYSTECTOMY [None]
  - GALLBLADDER DISORDER [None]
  - GALLBLADDER INJURY [None]
